FAERS Safety Report 23807921 (Version 1)
Quarter: 2024Q2

REPORT INFORMATION
  Report Type: Spontaneous
  Country: US (occurrence: None)
  Receive Date: 20240501
  Receipt Date: 20240501
  Transmission Date: 20240716
  Serious: No
  Sender: FDA-Public Use
  Company Number: None

PATIENT
  Age: 46 Year
  Sex: Female

DRUGS (2)
  1. AMBRISENTAN [Suspect]
     Active Substance: AMBRISENTAN
     Indication: Pulmonary arterial hypertension
     Dosage: FREQUENCY : DAILY;?
     Route: 048
     Dates: start: 20191011
  2. AMBRISENTAN [Suspect]
     Active Substance: AMBRISENTAN
     Indication: Heritable pulmonary arterial hypertension

REACTIONS (3)
  - Haematochezia [None]
  - Faeces discoloured [None]
  - Treatment noncompliance [None]

NARRATIVE: CASE EVENT DATE: 20240501
